FAERS Safety Report 24299124 (Version 1)
Quarter: 2024Q3

REPORT INFORMATION
  Report Type: Spontaneous
  Country: CN (occurrence: CN)
  Receive Date: 20240909
  Receipt Date: 20240909
  Transmission Date: 20241016
  Serious: Yes (Other)
  Sender: PAREXEL
  Company Number: CN-SHANGHAI JUNSHI BIOSCIENCES CO., LTD.-CN2024011216

PATIENT

DRUGS (3)
  1. TORIPALIMAB [Suspect]
     Active Substance: TORIPALIMAB
     Indication: Undifferentiated nasopharyngeal carcinoma
     Dosage: 240 MG
  2. PACLITAXEL [Concomitant]
     Active Substance: PACLITAXEL
     Indication: Undifferentiated nasopharyngeal carcinoma
     Dosage: 460 MG
  3. NEDAPLATIN [Concomitant]
     Active Substance: NEDAPLATIN
     Indication: Undifferentiated nasopharyngeal carcinoma
     Dosage: 130 MG

REACTIONS (4)
  - Myelosuppression [Unknown]
  - Oliguria [Unknown]
  - Abdominal distension [Unknown]
  - Constipation [Unknown]
